FAERS Safety Report 10244510 (Version 1)
Quarter: 2014Q2

REPORT INFORMATION
  Report Type: Spontaneous
  Country: US (occurrence: None)
  Receive Date: 20140617
  Receipt Date: 20140617
  Transmission Date: 20141212
  Serious: No
  Sender: FDA-Public Use
  Company Number: 2014CT000056

PATIENT
  Age: 63 Year
  Sex: Female
  Weight: 95.71 kg

DRUGS (7)
  1. KORLYM [Suspect]
     Indication: CUSHING^S SYNDROME
     Dates: start: 201401
  2. NADOLOL [Concomitant]
  3. AMLODIPINE [Concomitant]
  4. GABAPENTIN [Concomitant]
  5. PERCOCET [Concomitant]
  6. SYNTHROID [Concomitant]
  7. OMEPRAZOLE [Concomitant]

REACTIONS (7)
  - Nausea [None]
  - Vomiting [None]
  - Fatigue [None]
  - Oedema [None]
  - Back pain [None]
  - Migraine [None]
  - Aura [None]
